FAERS Safety Report 9165030 (Version 1)
Quarter: 2013Q1

REPORT INFORMATION
  Report Type: Spontaneous
  Country: GB (occurrence: None)
  Receive Date: 20130228
  Receipt Date: 20130228
  Transmission Date: 20140127
  Serious: Yes (Other)
  Sender: FDA-Public Use
  Company Number: KAD201302-000244

PATIENT
  Age: 42 Year
  Sex: Male
  Weight: 56 kg

DRUGS (6)
  1. RIBAVIRIN (RIBAVIRIN) [Suspect]
     Indication: HEPATITIS C
     Dosage: (400 MG/600 MG)
     Dates: start: 20120920, end: 20130116
  2. INCIVO (TELAPREVIR) [Suspect]
     Indication: HEPATITIS C
     Route: 048
     Dates: start: 20120920, end: 20130116
  3. PEGINTERFERON ALFA-2V(PEGINTERFERON ALFA-2B) [Concomitant]
  4. CITALOPRAM (CITALOPRAM) [Concomitant]
  5. RITONAVIR (RIBAVIRIN) [Concomitant]
  6. INCIVO (TELEPREVIR) [Concomitant]

REACTIONS (4)
  - Anaemia [None]
  - Syncope [None]
  - Drug ineffective [None]
  - Viral load increased [None]
